FAERS Safety Report 8905135 (Version 2)
Quarter: 2012Q4

REPORT INFORMATION
  Report Type: 
  Country: JP (occurrence: JP)
  Receive Date: 20121112
  Receipt Date: 20121129
  Transmission Date: 20130627
  Serious: Yes (Other)
  Sender: FDA-Public Use
  Company Number: PHHY2012JP102512

PATIENT
  Age: 70 Year
  Sex: Female
  Weight: 60 kg

DRUGS (12)
  1. RASILEZ [Suspect]
     Indication: HYPERTENSION
     Dosage: 150 mg, daily
     Route: 048
     Dates: end: 20120831
  2. RASILEZ [Suspect]
     Dosage: 300 mg, daily
     Route: 048
     Dates: start: 20121006, end: 20121022
  3. RASILEZ [Suspect]
     Dosage: 150 mg, daily
     Route: 048
     Dates: start: 20121023, end: 20121026
  4. AZELNIDIPINE [Concomitant]
     Indication: HYPERTENSION
     Dosage: 20 mg, UNK
     Route: 048
     Dates: start: 20120901, end: 20121006
  5. PRAVASTATIN SODIUM [Concomitant]
     Indication: HYPERLIPIDAEMIA
     Route: 048
     Dates: start: 20121006, end: 20121026
  6. CILNIDIPINE [Concomitant]
     Indication: HYPERTENSION
     Route: 048
     Dates: start: 20120303
  7. ARTIST [Concomitant]
     Indication: HYPERTENSION
     Route: 048
     Dates: start: 20120303
  8. FEBURIC [Concomitant]
     Indication: HYPERURICAEMIA
     Route: 048
     Dates: start: 20120107
  9. BAYASPIRIN [Concomitant]
     Indication: CEREBRAL ARTERIOSCLEROSIS
     Route: 048
     Dates: start: 20050525
  10. YOUCOBAL [Concomitant]
     Route: 048
     Dates: start: 20061111
  11. SHAKUYAKUKANZOTO [Concomitant]
     Indication: MUSCLE SPASMS
     Route: 048
     Dates: start: 20090220
  12. LOXONIN [Concomitant]
     Dosage: 2 DF, UNK
     Route: 048
     Dates: start: 20080711

REACTIONS (6)
  - Hyponatraemia [Recovered/Resolved]
  - Vomiting [Recovering/Resolving]
  - Malaise [Recovering/Resolving]
  - Muscular weakness [Recovering/Resolving]
  - Asthenia [Unknown]
  - Blood creatinine increased [Unknown]
